FAERS Safety Report 4613985-5 (Version None)
Quarter: 2005Q1

REPORT INFORMATION
  Report Type: 
  Country: None (occurrence: None)
  Receive Date: 20050321
  Receipt Date: 20050208
  Transmission Date: 20050727
  Serious: Yes (Life-Threatening)
  Sender: FDA-Public Use
  Company Number: JP-ROCHE-394959

PATIENT
  Age: 62 Year
  Sex: Male

DRUGS (3)
  1. ROCEPHIN [Suspect]
     Indication: ENTEROCOLITIS
     Dosage: LESS THAN 50CC (0.1G) ADMINISTERED
     Route: 041
     Dates: start: 20050204, end: 20050204
  2. PREDONINE [Concomitant]
     Route: 048
     Dates: start: 20001107
  3. NITRODERM [Concomitant]
     Dosage: FORM: TAPE
     Route: 061
     Dates: start: 19940615

REACTIONS (6)
  - ACUTE PULMONARY OEDEMA [None]
  - FLUSHING [None]
  - LOSS OF CONSCIOUSNESS [None]
  - PRURITUS GENERALISED [None]
  - RESPIRATORY ARREST [None]
  - SHOCK [None]
